FAERS Safety Report 5499354-7 (Version None)
Quarter: 2007Q4

REPORT INFORMATION
  Report Type: 
  Country: None (occurrence: None)
  Receive Date: 20071026
  Receipt Date: 20071017
  Transmission Date: 20080405
  Serious: Yes (Life-Threatening, Hospitalization)
  Sender: FDA-Public Use
  Company Number: GB-ELI_LILLY_AND_COMPANY-GB200710004401

PATIENT
  Sex: Female

DRUGS (5)
  1. XIGRIS [Suspect]
     Indication: SEPSIS
     Dosage: 24 MCG/KG/H
     Route: 065
     Dates: start: 20071014, end: 20071018
  2. CLARITHROMYCIN [Concomitant]
     Indication: SEPSIS
     Dosage: UNK, UNKNOWN
     Route: 065
  3. METRONIDAZOLE [Concomitant]
     Indication: SEPSIS
     Dosage: UNK, UNKNOWN
     Route: 065
  4. GENTAMICIN [Concomitant]
     Indication: SEPSIS
     Dosage: UNK, UNKNOWN
     Route: 065
  5. CIPROFLOXACIN [Concomitant]
     Indication: SEPSIS
     Dosage: UNK, UNKNOWN
     Route: 065

REACTIONS (1)
  - THROMBOCYTOPENIA [None]
